FAERS Safety Report 7719258-6 (Version None)
Quarter: 2011Q3

REPORT INFORMATION
  Report Type: 
  Country: None (occurrence: None)
  Receive Date: 20110830
  Receipt Date: 20110824
  Transmission Date: 20111222
  Serious: Yes (Other)
  Sender: FDA-Public Use
  Company Number: NL-ABBOTT-11P-114-0849007-00

PATIENT
  Age: 60 Year
  Sex: Male

DRUGS (1)
  1. PERINDOP [Suspect]
     Indication: HYPERTENSION
     Route: 048

REACTIONS (5)
  - HYPONATRAEMIA [None]
  - ASPERGILLOSIS [None]
  - RED BLOOD CELL SEDIMENTATION RATE INCREASED [None]
  - INAPPROPRIATE ANTIDIURETIC HORMONE SECRETION [None]
  - ANAEMIA [None]
